FAERS Safety Report 7277088-6 (Version None)
Quarter: 2011Q1

REPORT INFORMATION
  Report Type: 
  Country: None (occurrence: None)
  Receive Date: 20110207
  Receipt Date: 20110202
  Transmission Date: 20110831
  Serious: Yes (Hospitalization, Other)
  Sender: FDA-Public Use
  Company Number: FR-PFIZER INC-2009193829

PATIENT
  Age: 65 Year
  Sex: Male
  Weight: 63 kg

DRUGS (8)
  1. LASIX [Suspect]
     Dosage: 40 MG, 1X/DAY
     Dates: start: 20010101, end: 20090402
  2. LOPERAMIDE [Concomitant]
     Dosage: 1 DF, 1X/DAY
  3. SUNITINIB MALATE [Suspect]
     Indication: NEOPLASM MALIGNANT
     Dosage: 37.5 MG, UNK
     Route: 048
     Dates: start: 20090206, end: 20090428
  4. ZESTRIL [Concomitant]
     Dosage: 20 MG, 1X/DAY
  5. ALDACTONE [Suspect]
     Dosage: UNK
     Dates: start: 20090430, end: 20090506
  6. ALDACTONE [Suspect]
     Indication: ASCITES
     Dosage: 150 MG, 1X/DAY
     Dates: start: 20090227, end: 20090402
  7. NEXIUM [Concomitant]
     Dosage: 20 MG, 1X/DAY
  8. AVLOCARDYL [Concomitant]
     Dosage: 160 MG, 1X/DAY

REACTIONS (4)
  - ASTHENIA [None]
  - HYPONATRAEMIA [None]
  - RENAL FAILURE [None]
  - ESCHERICHIA SEPSIS [None]
